FAERS Safety Report 18453372 (Version 1)
Quarter: 2020Q4

REPORT INFORMATION
  Report Type: Spontaneous
  Country: US (occurrence: US)
  Receive Date: 20201102
  Receipt Date: 20201102
  Transmission Date: 20210114
  Serious: Yes (Other)
  Sender: FDA-Public Use
  Company Number: US-PROCTER+GAMBLE-GS20121818

PATIENT

DRUGS (2)
  1. METAMUCIL [Suspect]
     Active Substance: PLANTAGO SEED
     Indication: INTESTINAL OBSTRUCTION
     Route: 048
  2. OPIOIDS [Suspect]
     Active Substance: UNSPECIFIED INGREDIENT
     Route: 065

REACTIONS (3)
  - Drug ineffective for unapproved indication [Unknown]
  - Intestinal obstruction [Unknown]
  - Condition aggravated [Unknown]
